FAERS Safety Report 5837841-X (Version None)
Quarter: 2008Q3

REPORT INFORMATION
  Report Type: 
  Country: None (occurrence: None)
  Receive Date: 20080808
  Receipt Date: 20071224
  Transmission Date: 20090109
  Serious: No
  Sender: FDA-Public Use
  Company Number: A0701068A

PATIENT
  Sex: Female

DRUGS (1)
  1. PAXIL CR [Suspect]
     Indication: DEPRESSION
     Dosage: 37.5MG UNKNOWN
     Route: 048

REACTIONS (2)
  - DEPRESSED MOOD [None]
  - EMOTIONAL DISORDER [None]
